FAERS Safety Report 8092259-7 (Version None)
Quarter: 2012Q1

REPORT INFORMATION
  Report Type: 
  Country: None (occurrence: None)
  Receive Date: 20120129
  Receipt Date: 20111122
  Transmission Date: 20120608
  Serious: No
  Sender: FDA-Public Use
  Company Number: US-ABBOTT-11P-163-0876657-00

PATIENT
  Sex: Male
  Weight: 95.34 kg

DRUGS (4)
  1. WARFARIN SODIUM [Concomitant]
     Indication: THROMBOSIS PROPHYLAXIS
  2. SIMVASTATIN [Concomitant]
     Indication: BLOOD CHOLESTEROL INCREASED
  3. LISINOPRIL [Concomitant]
     Indication: HYPERTENSION
  4. HUMIRA [Suspect]
     Indication: CROHN'S DISEASE
     Dates: start: 20110901, end: 20111117

REACTIONS (2)
  - ECZEMA [None]
  - OEDEMA PERIPHERAL [None]
